FAERS Safety Report 5197155-0 (Version None)
Quarter: 2006Q4

REPORT INFORMATION
  Report Type: 
  Country: None (occurrence: None)
  Receive Date: 20061227
  Receipt Date: 20061215
  Transmission Date: 20070319
  Serious: Yes (Life-Threatening, Hospitalization)
  Sender: FDA-Public Use
  Company Number: FR-ROCHE-262851

PATIENT
  Sex: Female
  Weight: 1.2 kg

DRUGS (10)
  1. NICARDIPINE HYDROCHLORIDE [Suspect]
     Indication: PREMATURE LABOUR
  2. INVIRASE [Suspect]
     Indication: HIV INFECTION
  3. BACTRIM [Suspect]
     Indication: DRUG USE FOR UNKNOWN INDICATION
  4. RETROVIR [Suspect]
     Indication: HIV INFECTION
  5. NORVIR [Suspect]
     Indication: HIV INFECTION
  6. ZERIT [Suspect]
     Indication: HIV INFECTION
  7. VIDEX [Suspect]
     Indication: HIV INFECTION
  8. TRIFLUCAN [Concomitant]
  9. CELESTENE [Concomitant]
  10. SALBUMOL [Concomitant]

REACTIONS (8)
  - ALANINE AMINOTRANSFERASE INCREASED [None]
  - APGAR SCORE LOW [None]
  - DRUG EXPOSURE DURING PREGNANCY [None]
  - GAIT DISTURBANCE [None]
  - NECROTISING ENTEROCOLITIS NEONATAL [None]
  - PREMATURE BABY [None]
  - SPEECH DISORDER DEVELOPMENTAL [None]
  - THROMBOCYTHAEMIA [None]
